FAERS Safety Report 5107316-4 (Version None)
Quarter: 2006Q3

REPORT INFORMATION
  Report Type: 
  Country: None (occurrence: None)
  Receive Date: 20060914
  Receipt Date: 20060808
  Transmission Date: 20061208
  Serious: Yes (Other)
  Sender: FDA-Public Use
  Company Number: 2006071798

PATIENT
  Age: 41 Year
  Sex: Male

DRUGS (6)
  1. LYRICA [Suspect]
     Indication: NEUROPATHY PERIPHERAL
     Dosage: ORAL
     Route: 048
     Dates: start: 20060512, end: 20060516
  2. KLONOPIN [Concomitant]
  3. METHADONE HCL [Concomitant]
  4. MORPHINE [Concomitant]
  5. PERCOCET [Concomitant]
  6. SOMA [Concomitant]

REACTIONS (15)
  - ANAEMIA [None]
  - ASCITES [None]
  - BLOOD ALBUMIN DECREASED [None]
  - BLOOD CALCIUM DECREASED [None]
  - BLOOD POTASSIUM DECREASED [None]
  - DEPRESSED LEVEL OF CONSCIOUSNESS [None]
  - DYSARTHRIA [None]
  - HEART RATE INCREASED [None]
  - HYPERSENSITIVITY [None]
  - LETHARGY [None]
  - PAIN [None]
  - PITTING OEDEMA [None]
  - POLYARTHRITIS [None]
  - PROTEIN TOTAL DECREASED [None]
  - RESPIRATORY RATE INCREASED [None]
